FAERS Safety Report 24782010 (Version 1)
Quarter: 2024Q4

REPORT INFORMATION
  Report Type: Report from Study
  Country: NL (occurrence: NL)
  Receive Date: 20241227
  Receipt Date: 20241227
  Transmission Date: 20250115
  Serious: Yes (Hospitalization)
  Sender: ABBVIE
  Company Number: NL-ABBVIE-6064804

PATIENT
  Age: 74 Year
  Sex: Male

DRUGS (12)
  1. CARBIDOPA\LEVODOPA [Suspect]
     Active Substance: CARBIDOPA\LEVODOPA
     Indication: Parkinson^s disease
     Route: 050
     Dates: start: 20180202
  2. CARBIDOPA\LEVODOPA [Suspect]
     Active Substance: CARBIDOPA\LEVODOPA
     Dosage: MORNING DOSAGE:8.0 ML  CONTINUOUS DOSAGE: 6.5 ML/H EXTRA DOSAGE:4.0ML THERAPY DURATION: REMAINS A...
     Route: 050
     Dates: start: 20240514, end: 20240718
  3. CARBIDOPA\LEVODOPA [Suspect]
     Active Substance: CARBIDOPA\LEVODOPA
     Dosage: NIGHT PUMP EXTRA DOSAGE:1,5.0  ML NIGHT CONTINUOUS DOSAGE: 4.9ML/H THERAPY DURATION: REMAINS AT 2...
     Route: 050
     Dates: start: 20240718, end: 20240926
  4. CARBIDOPA\LEVODOPA [Suspect]
     Active Substance: CARBIDOPA\LEVODOPA
     Dosage: MORNING DOSAGE:7.5 ML  CONTINUOUS DOSAGE: 6.5 ML/H EXTRA DOSAGE:4.0ML THERAPY DURATION: REMAINS A...
     Route: 050
     Dates: start: 20240926
  5. CARBIDOPA\LEVODOPA [Suspect]
     Active Substance: CARBIDOPA\LEVODOPA
     Dosage: MORNING DOSAGE:8.5 ML  CONTINUOUS DOSAGE: 6.5 ML/H EXTRA DOSAGE:4.0ML THERAPY DURATION: REMAINS A...
     Route: 050
     Dates: start: 20240718, end: 20240718
  6. ASPIRIN [Concomitant]
     Active Substance: ASPIRIN
     Indication: Anticoagulant therapy
  7. POLYETHYLENE GLYCOLS [Concomitant]
     Active Substance: POLYETHYLENE GLYCOLS
     Indication: Product used for unknown indication
  8. OXAZEPAM [Concomitant]
     Active Substance: OXAZEPAM
     Indication: Product used for unknown indication
  9. CLOZAPINE [Concomitant]
     Active Substance: CLOZAPINE
     Indication: Product used for unknown indication
  10. NEUPRO [Concomitant]
     Active Substance: ROTIGOTINE
     Indication: Product used for unknown indication
  11. RIVASTIGMINE [Concomitant]
     Active Substance: RIVASTIGMINE
     Indication: Product used for unknown indication
  12. PYRIDOXINE [Concomitant]
     Active Substance: PYRIDOXINE
     Indication: Product used for unknown indication

REACTIONS (5)
  - Dyspnoea [Not Recovered/Not Resolved]
  - Stoma site pain [Not Recovered/Not Resolved]
  - Anger [Not Recovered/Not Resolved]
  - Device connection issue [Not Recovered/Not Resolved]
  - Abnormal behaviour [Not Recovered/Not Resolved]
